FAERS Safety Report 15002420 (Version 1)
Quarter: 2018Q2

REPORT INFORMATION
  Report Type: Spontaneous
  Country: IT (occurrence: IT)
  Receive Date: 20180612
  Receipt Date: 20180612
  Transmission Date: 20180711
  Serious: Yes (Hospitalization)
  Sender: FDA-Public Use
  Company Number: PHHY2018IT017730

PATIENT
  Age: 58 Year
  Sex: Male

DRUGS (4)
  1. ACETYLSALICYLIC ACID [Interacting]
     Active Substance: ASPIRIN
     Indication: PRODUCT USED FOR UNKNOWN INDICATION
     Dosage: UNK
     Route: 065
  2. SIMVASTATIN. [Suspect]
     Active Substance: SIMVASTATIN
     Indication: PRODUCT USED FOR UNKNOWN INDICATION
     Dosage: UNK
     Route: 065
  3. GLIBENCLAMIDE [Interacting]
     Active Substance: GLYBURIDE
     Indication: PRODUCT USED FOR UNKNOWN INDICATION
     Dosage: UNK
     Route: 065
  4. SPIRONOLACTONE. [Interacting]
     Active Substance: SPIRONOLACTONE
     Indication: PRODUCT USED FOR UNKNOWN INDICATION
     Dosage: UNK
     Route: 065

REACTIONS (18)
  - Drug interaction [Unknown]
  - Areflexia [Unknown]
  - Oliguria [Unknown]
  - Pulmonary congestion [Unknown]
  - Quadriparesis [Unknown]
  - Myalgia [Unknown]
  - Scrotal oedema [Unknown]
  - Pain in extremity [Unknown]
  - Hepatic pain [Unknown]
  - Oedema [Unknown]
  - Oedema peripheral [Unknown]
  - Hepatomegaly [Unknown]
  - Rhabdomyolysis [Unknown]
  - Back pain [Unknown]
  - Dehydration [Unknown]
  - Dysuria [Unknown]
  - Gait disturbance [Unknown]
  - Acute kidney injury [Unknown]
